FAERS Safety Report 12411426 (Version 2)
Quarter: 2017Q1

REPORT INFORMATION
  Report Type: Spontaneous
  Country: US (occurrence: US)
  Receive Date: 20160527
  Receipt Date: 20170130
  Transmission Date: 20170428
  Serious: No
  Sender: FDA-Public Use
  Company Number: US-ASTRAZENECA-2016SE52858

PATIENT
  Age: 63 Year
  Sex: Female

DRUGS (4)
  1. NEXIUM [Suspect]
     Active Substance: ESOMEPRAZOLE MAGNESIUM
     Dosage: UNK
     Route: 048
  2. NEOSPORIN [Suspect]
     Active Substance: BACITRACIN ZINC\NEOMYCIN SULFATE\POLYMYXIN B SULFATE
     Route: 065
  3. TETRACYCLINE HCL [Suspect]
     Active Substance: TETRACYCLINE HYDROCHLORIDE
     Dosage: UNK
     Route: 065
  4. SAVELLA [Suspect]
     Active Substance: MILNACIPRAN HYDROCHLORIDE
     Route: 065

REACTIONS (3)
  - Dermatitis allergic [Unknown]
  - Dermatitis contact [Unknown]
  - Drug hypersensitivity [Unknown]
